FAERS Safety Report 9555064 (Version 1)
Quarter: 2013Q3

REPORT INFORMATION
  Report Type: Spontaneous
  Country: US (occurrence: None)
  Receive Date: 20130925
  Receipt Date: 20130925
  Transmission Date: 20140515
  Serious: Yes (Life-Threatening, Hospitalization, Disabling)
  Sender: FDA-Public Use
  Company Number: None

PATIENT
  Age: 41 Year
  Sex: Male
  Weight: 91.17 kg

DRUGS (7)
  1. INSULIN PUMP MEDTRONIC [Suspect]
  2. NOVOLOG: SLIDING SCALE [Concomitant]
  3. LANTIS [Concomitant]
  4. CYMBALTA [Concomitant]
  5. ASPIRIN [Concomitant]
  6. ZANTAC [Concomitant]
  7. MULTI-VITAMIN 1/DAY [Concomitant]

REACTIONS (9)
  - Convulsion [None]
  - Infusion related reaction [None]
  - Joint dislocation [None]
  - Humerus fracture [None]
  - Fracture [None]
  - Spinal fracture [None]
  - Diabetic ketoacidosis [None]
  - Depression [None]
  - Amnesia [None]
